FAERS Safety Report 20190182 (Version 1)
Quarter: 2021Q4

REPORT INFORMATION
  Report Type: Spontaneous
  Country: None (occurrence: US)
  Receive Date: 20211215
  Receipt Date: 20211215
  Transmission Date: 20220303
  Serious: Yes (Other)
  Sender: FDA-Public Use
  Company Number: US-Supervalu-2123065

PATIENT
  Sex: Female

DRUGS (1)
  1. EQUALINE MUCUS RELIEF [Suspect]
     Active Substance: ACETAMINOPHEN\DEXTROMETHORPHAN HYDROBROMIDE\GUAIFENESIN\PHENYLEPHRINE HYDROCHLORIDE
     Indication: Nasopharyngitis
     Route: 048
     Dates: start: 20211128, end: 20211128

REACTIONS (1)
  - Rash pruritic [Recovered/Resolved]
